FAERS Safety Report 5043846-1 (Version None)
Quarter: 2006Q2

REPORT INFORMATION
  Report Type: 
  Country: None (occurrence: None)
  Receive Date: 20060629
  Receipt Date: 20060615
  Transmission Date: 20061013
  Serious: Yes (Other)
  Sender: FDA-Public Use
  Company Number: 2006RR-02671

PATIENT
  Age: 74 Year
  Sex: Female

DRUGS (2)
  1. LISINOPRIL [Suspect]
     Dates: start: 20021001
  2. HYDROCHLOROTHIAZIDE [Suspect]
     Dates: start: 20021001

REACTIONS (5)
  - DRUG ERUPTION [None]
  - PARAKERATOSIS [None]
  - PERIVASCULAR DERMATITIS [None]
  - PITYRIASIS ROSEA [None]
  - SKIN OEDEMA [None]
